FAERS Safety Report 11495008 (Version 1)
Quarter: 2015Q3

REPORT INFORMATION
  Report Type: Spontaneous
  Country: US (occurrence: US)
  Receive Date: 20150911
  Receipt Date: 20150911
  Transmission Date: 20151125
  Serious: No
  Sender: FDA-Public Use
  Company Number: US-ROCHE-1012861

PATIENT
  Sex: Male

DRUGS (2)
  1. PEGASYS [Suspect]
     Active Substance: PEGINTERFERON ALFA-2A
     Indication: HEPATITIS C
     Route: 058
     Dates: start: 20111111
  2. RIBASPHERE RIBAPAK [Suspect]
     Active Substance: RIBAVIRIN
     Indication: HEPATITIS C
     Route: 048

REACTIONS (8)
  - Pyrexia [Unknown]
  - Insomnia [Unknown]
  - Chills [Unknown]
  - Headache [Unknown]
  - Oral herpes [Unknown]
  - Myalgia [Unknown]
  - Influenza like illness [Unknown]
  - Skin ulcer [Unknown]
